FAERS Safety Report 9841765 (Version 1)
Quarter: 2014Q1

REPORT INFORMATION
  Report Type: Spontaneous
  Country: US (occurrence: US)
  Receive Date: 20140124
  Receipt Date: 20140124
  Transmission Date: 20141002
  Serious: Yes (Other)
  Sender: FDA-Public Use
  Company Number: US-009507513-1401USA010311

PATIENT
  Age: 19 Year
  Sex: Female
  Weight: 90.7 kg

DRUGS (1)
  1. IMPLANON [Suspect]
     Indication: CONTRACEPTION
     Dosage: UNK, RIGHT ARM
     Route: 059
     Dates: start: 20110428

REACTIONS (3)
  - Cholecystectomy [Unknown]
  - Abdominal pain upper [Unknown]
  - Pain in extremity [Unknown]
